FAERS Safety Report 6025064-3 (Version None)
Quarter: 2008Q4

REPORT INFORMATION
  Report Type: 
  Country: None (occurrence: None)
  Receive Date: 20081231
  Receipt Date: 20081222
  Transmission Date: 20090506
  Serious: Yes (Hospitalization)
  Sender: FDA-Public Use
  Company Number: NL-TEVA-162799ISR

PATIENT
  Age: 46 Year
  Sex: Male

DRUGS (6)
  1. CLOZAPINE [Interacting]
     Indication: SCHIZOPHRENIA, PARANOID TYPE
  2. CIPROFLOXACIN [Suspect]
     Route: 042
  3. AMOXICILLIN [Concomitant]
     Indication: UROSEPSIS
  4. CITALOPRAM [Concomitant]
  5. LORAZEPAM [Concomitant]
  6. VALPROIC ACID [Concomitant]

REACTIONS (2)
  - DRUG INTERACTION [None]
  - RHABDOMYOLYSIS [None]
